FAERS Safety Report 4636420-X (Version None)
Quarter: 2005Q2

REPORT INFORMATION
  Report Type: 
  Country: None (occurrence: None)
  Receive Date: 20050415
  Receipt Date: 20050404
  Transmission Date: 20051028
  Serious: Yes (Hospitalization)
  Sender: FDA-Public Use
  Company Number: US-ROCHE-400607

PATIENT
  Age: 37 Year
  Sex: Male

DRUGS (9)
  1. PEG-INTERFERON ALFA 2A (RO 25-8310) [Suspect]
     Dosage: GIVEN WEEKLY.
     Route: 058
     Dates: start: 20041105, end: 20050309
  2. PEG-INTERFERON ALFA 2A (RO 25-8310) [Suspect]
     Dosage: WEEKLY.
     Route: 058
     Dates: start: 20050323
  3. RIBAVIRIN [Suspect]
     Route: 048
     Dates: start: 20041105, end: 20050314
  4. RIBAVIRIN [Suspect]
     Route: 048
     Dates: start: 20050323
  5. SALBUTAMOL [Concomitant]
  6. FLUTICASONE PROPIONATE [Concomitant]
     Dosage: TRADE NAME REPORTED AS ADAVIR DISKUS.
  7. FIORICET [Concomitant]
  8. NASONEX [Concomitant]
  9. FLUOXETINE HCL [Concomitant]

REACTIONS (1)
  - ASTHMA [None]
